FAERS Safety Report 7375679-5 (Version None)
Quarter: 2011Q1

REPORT INFORMATION
  Report Type: 
  Country: None (occurrence: None)
  Receive Date: 20110325
  Receipt Date: 20110323
  Transmission Date: 20110831
  Serious: Yes (Death, Hospitalization)
  Sender: FDA-Public Use
  Company Number: BR-ABBOTT-11P-020-0713987-00

PATIENT
  Sex: Female

DRUGS (1)
  1. HUMIRA [Suspect]
     Indication: RHEUMATOID ARTHRITIS

REACTIONS (6)
  - VOMITING [None]
  - LUNG INFECTION [None]
  - STOMATITIS [None]
  - PNEUMONIA [None]
  - IMMUNODEFICIENCY [None]
  - DIARRHOEA [None]
